FAERS Safety Report 8457729-8 (Version None)
Quarter: 2012Q2

REPORT INFORMATION
  Report Type: 
  Country: None (occurrence: None)
  Receive Date: 20120618
  Receipt Date: 20120618
  Transmission Date: 20120825
  Serious: Yes (Other)
  Sender: FDA-Public Use
  Company Number: None

PATIENT
  Age: 66 Year
  Sex: Male
  Weight: 113.3993 kg

DRUGS (1)
  1. JANUVIA [Suspect]
     Indication: RENAL IMPAIRMENT
     Dosage: 50 DAILY PO
     Route: 048
     Dates: start: 20120507, end: 20120617

REACTIONS (1)
  - CONSTIPATION [None]
